FAERS Safety Report 10215748 (Version 1)
Quarter: 2014Q2

REPORT INFORMATION
  Report Type: Spontaneous
  Country: US (occurrence: None)
  Receive Date: 20140603
  Receipt Date: 20140603
  Transmission Date: 20141212
  Serious: Yes (Other)
  Sender: FDA-Public Use
  Company Number: None

PATIENT
  Age: 64 Year
  Sex: Male

DRUGS (1)
  1. ENBREL 50 MG/ML PFS [Suspect]
     Route: 058

REACTIONS (4)
  - Chest discomfort [None]
  - Joint swelling [None]
  - Arthralgia [None]
  - Pain in extremity [None]
